FAERS Safety Report 15885086 (Version 1)
Quarter: 2019Q1

REPORT INFORMATION
  Report Type: Spontaneous
  Country: IT (occurrence: IT)
  Receive Date: 20190129
  Receipt Date: 20190129
  Transmission Date: 20190417
  Serious: Yes (Other)
  Sender: FDA-Public Use
  Company Number: IT-SANIK-2019SA020518AA

PATIENT
  Age: 60 Year
  Sex: Female

DRUGS (6)
  1. PLAVIX [Suspect]
     Active Substance: CLOPIDOGREL BISULFATE
     Indication: ACUTE CORONARY SYNDROME
     Dosage: 75 MG, QD
     Route: 048
     Dates: start: 20130101
  2. METOPROLOL TARTRATE. [Suspect]
     Active Substance: METOPROLOL TARTRATE
     Indication: ACUTE CORONARY SYNDROME
     Dates: start: 20130101
  3. RANEXA [Suspect]
     Active Substance: RANOLAZINE
     Indication: ACUTE CORONARY SYNDROME
     Dates: start: 20180101
  4. BIFRIL [Concomitant]
     Active Substance: ZOFENOPRIL
  5. CARDIOASPIRIN [Concomitant]
     Active Substance: ASPIRIN
  6. VYTORIN [Concomitant]
     Active Substance: EZETIMIBE\SIMVASTATIN

REACTIONS (5)
  - Chest pain [Not Recovered/Not Resolved]
  - Treatment noncompliance [Unknown]
  - Hypertensive crisis [Not Recovered/Not Resolved]
  - Dyspnoea [Not Recovered/Not Resolved]
  - Migraine [Not Recovered/Not Resolved]

NARRATIVE: CASE EVENT DATE: 20181220
